FAERS Safety Report 4815913-6 (Version None)
Quarter: 2005Q4

REPORT INFORMATION
  Report Type: 
  Country: None (occurrence: None)
  Receive Date: 20051027
  Receipt Date: 20051013
  Transmission Date: 20060501
  Serious: Yes (Life-Threatening, Hospitalization)
  Sender: FDA-Public Use
  Company Number: 2005-01299

PATIENT
  Age: 63 Year
  Sex: Female
  Weight: 53 kg

DRUGS (9)
  1. VELCADE [Suspect]
     Indication: MULTIPLE MYELOMA
     Dosage: 1.00 MG/M2, 2/WEEK, INTRAVENOUS
     Route: 042
     Dates: start: 20050606, end: 20050613
  2. VELCADE [Suspect]
  3. VELCADE [Suspect]
  4. DURAGESIC-100 [Concomitant]
  5. CYCLONAMINE (ETAMSILATE) [Concomitant]
  6. MILURIT (ALLOPURINOL) [Concomitant]
  7. AREDIA [Concomitant]
  8. FUROSEMIDE [Concomitant]
  9. RANIGAST (RANITIDINE HYDROCHLORIDE) [Concomitant]

REACTIONS (5)
  - HAEMODYNAMIC INSTABILITY [None]
  - INFECTION IN AN IMMUNOCOMPROMISED HOST [None]
  - MALIGNANT NEOPLASM PROGRESSION [None]
  - MULTIPLE MYELOMA [None]
  - UROSEPSIS [None]
